FAERS Safety Report 7536822-8 (Version None)
Quarter: 2011Q2

REPORT INFORMATION
  Report Type: 
  Country: None (occurrence: None)
  Receive Date: 20110609
  Receipt Date: 20110602
  Transmission Date: 20111010
  Serious: Yes (Hospitalization)
  Sender: FDA-Public Use
  Company Number: JP-ROCHE-769251

PATIENT
  Sex: Male
  Weight: 36 kg

DRUGS (5)
  1. BONALON [Concomitant]
     Route: 048
     Dates: start: 20110406
  2. AVASTIN [Suspect]
     Indication: LUNG ADENOCARCINOMA METASTATIC
     Route: 041
     Dates: start: 20110112
  3. AVASTIN [Suspect]
     Route: 041
     Dates: start: 20110209, end: 20110331
  4. TAXOTERE [Suspect]
     Indication: LUNG ADENOCARCINOMA METASTATIC
     Dosage: DOSAGE IS UNCERTAIN
     Route: 041
     Dates: start: 20110112, end: 20110331
  5. LOPERAMIDE HCL [Concomitant]
     Route: 048
     Dates: start: 20110406

REACTIONS (6)
  - MALLORY-WEISS SYNDROME [None]
  - DECREASED APPETITE [None]
  - LUNG DISORDER [None]
  - DIARRHOEA [None]
  - RESPIRATORY FAILURE [None]
  - OESOPHAGEAL HAEMORRHAGE [None]
